FAERS Safety Report 16365269 (Version 1)
Quarter: 2019Q2

REPORT INFORMATION
  Report Type: Spontaneous
  Country: US (occurrence: US)
  Receive Date: 20190529
  Receipt Date: 20190529
  Transmission Date: 20190711
  Serious: Yes (Life-Threatening, Hospitalization, Other)
  Sender: FDA-Public Use
  Company Number: US-LUPIN PHARMACEUTICALS INC.-2019-03228

PATIENT
  Age: 17 Year
  Sex: Female

DRUGS (1)
  1. CLONIDINE. [Suspect]
     Active Substance: CLONIDINE
     Indication: PRODUCT USED FOR UNKNOWN INDICATION
     Dosage: UNK (160 TABLETS)
     Route: 048

REACTIONS (7)
  - Mental status changes [Unknown]
  - Bradycardia [Unknown]
  - Pulmonary oedema [Unknown]
  - Overdose [Unknown]
  - Somnolence [Unknown]
  - Ejection fraction decreased [Unknown]
  - Hypertension [Unknown]
